FAERS Safety Report 8578745-1 (Version None)
Quarter: 2012Q3

REPORT INFORMATION
  Report Type: 
  Country: None (occurrence: None)
  Receive Date: 20120726
  Receipt Date: 20120713
  Transmission Date: 20120928
  Serious: Yes (Hospitalization, Other)
  Sender: FDA-Public Use
  Company Number: 2012-000515

PATIENT
  Age: 52 Year
  Sex: Female

DRUGS (10)
  1. PRILOSEC [Concomitant]
  2. COTRIMAZOLE [Concomitant]
  3. ACTONEL [Suspect]
     Indication: OSTEOPOROSIS
     Dosage: 35 MG ONCE WEEKLY, ORAL
     Route: 048
     Dates: start: 20050901, end: 20060501
  4. NEXIUM 9ESOMEPRAZOLE SODIUM) [Concomitant]
  5. CRESTOR [Concomitant]
  6. LIPITOR [Concomitant]
  7. BONIVA [Suspect]
     Indication: OSTEOPOROSIS
     Dosage: 150 MG ONCE MONTHLY, ORAL
     Route: 048
     Dates: start: 20060601, end: 20080501
  8. PREVACID [Concomitant]
  9. MULTI-VITAMIN [Concomitant]
  10. FOSAMAX [Suspect]
     Indication: OSTEOPOROSIS
     Dosage: , ORAL
     Route: 048
     Dates: start: 20020101, end: 20040101

REACTIONS (11)
  - ARTHRALGIA [None]
  - FRACTURE NONUNION [None]
  - GASTROOESOPHAGEAL REFLUX DISEASE [None]
  - PATHOLOGICAL FRACTURE [None]
  - BURSITIS [None]
  - FALL [None]
  - PAIN IN EXTREMITY [None]
  - GREENSTICK FRACTURE [None]
  - MUSCULOSKELETAL PAIN [None]
  - FEMUR FRACTURE [None]
  - IMPAIRED HEALING [None]
